FAERS Safety Report 4432069-2 (Version None)
Quarter: 2004Q3

REPORT INFORMATION
  Report Type: 
  Country: None (occurrence: None)
  Receive Date: 20040818
  Receipt Date: 20040803
  Transmission Date: 20050211
  Serious: Yes (Hospitalization)
  Sender: FDA-Public Use
  Company Number: 157944

PATIENT
  Age: 55 Year
  Sex: Male
  Weight: 69.8539 kg

DRUGS (2)
  1. AVONEX [Suspect]
     Indication: MULTIPLE SCLEROSIS
     Dosage: 30 MCG QW IM
     Route: 030
     Dates: start: 20010410, end: 20030101
  2. AVONEX [Suspect]
     Indication: MULTIPLE SCLEROSIS
     Dosage: 30 MCG QW IM
     Route: 030
     Dates: start: 20030101

REACTIONS (9)
  - ARTHRALGIA [None]
  - BALANCE DISORDER [None]
  - DIFFICULTY IN WALKING [None]
  - FATIGUE [None]
  - KNEE ARTHROPLASTY [None]
  - MEMORY IMPAIRMENT [None]
  - MUSCULAR WEAKNESS [None]
  - POSTOPERATIVE INFECTION [None]
  - WOUND INFECTION STAPHYLOCOCCAL [None]
